FAERS Safety Report 7573463-0 (Version None)
Quarter: 2011Q2

REPORT INFORMATION
  Report Type: 
  Country: None (occurrence: None)
  Receive Date: 20110627
  Receipt Date: 20110616
  Transmission Date: 20111010
  Serious: Yes (Death, Hospitalization, Other)
  Sender: FDA-Public Use
  Company Number: JP-CELGENEUS-087-21660-11060757

PATIENT
  Age: 51 Year
  Sex: Female
  Weight: 80 kg

DRUGS (25)
  1. DOPAMINE HCL [Concomitant]
     Route: 065
     Dates: start: 20110101, end: 20110101
  2. ABRAXANE [Suspect]
     Indication: BREAST CANCER METASTATIC
     Dosage: 400 MILLIGRAM
     Route: 051
     Dates: start: 20110404, end: 20110404
  3. ABRAXANE [Suspect]
     Dosage: 380 MILLIGRAM
     Route: 051
     Dates: start: 20110425, end: 20110425
  4. MAXIPIME [Concomitant]
     Dosage: 4 GRAM
     Route: 065
     Dates: start: 20110526, end: 20110602
  5. SALIPEX [Concomitant]
     Route: 065
     Dates: start: 20110101, end: 20110101
  6. PHENYTOIN [Concomitant]
     Route: 065
     Dates: start: 20110101, end: 20110101
  7. NEUPOGEN [Concomitant]
     Dosage: 150 MICROGRAM
     Route: 065
     Dates: start: 20110526, end: 20110530
  8. TRAVELMIN [Concomitant]
     Route: 048
     Dates: start: 20110404, end: 20110525
  9. LIPIDIL [Concomitant]
     Indication: HYPERLIPIDAEMIA
     Dosage: 100 MILLIGRAM
     Route: 048
     Dates: start: 20110404, end: 20110525
  10. FLURBIPROFEN [Concomitant]
     Route: 065
     Dates: start: 20110101, end: 20110101
  11. ABRAXANE [Suspect]
     Dosage: 380 MILLIGRAM
     Route: 051
     Dates: start: 20110519, end: 20110519
  12. URSO 250 [Concomitant]
     Indication: LIVER DISORDER
     Dosage: 300 MILLIGRAM
     Route: 048
     Dates: start: 20110404, end: 20110525
  13. NEO MINOPHAGEN C [Concomitant]
     Dosage: 40 MILLILITER
     Route: 065
     Dates: start: 20110526
  14. GLYCEREB [Concomitant]
     Route: 065
     Dates: start: 20110101, end: 20110101
  15. GASPORT [Concomitant]
     Route: 065
     Dates: start: 20110101, end: 20110101
  16. DECADRON [Concomitant]
     Indication: INTRACRANIAL PRESSURE INCREASED
     Dosage: 1 MILLIGRAM
     Route: 048
     Dates: start: 20110404, end: 20110524
  17. TRANSAMIN [Concomitant]
     Route: 065
     Dates: start: 20110101, end: 20110101
  18. TEGRETOL [Concomitant]
     Indication: CONVULSION
     Dosage: 100 MILLIGRAM
     Route: 048
     Dates: start: 20110404, end: 20110424
  19. DECADRON [Concomitant]
     Indication: CONVULSION
  20. LOXONIN [Concomitant]
     Indication: HEADACHE
     Dosage: 180 MILLIGRAM
     Route: 048
     Dates: start: 20110404, end: 20110524
  21. STEROIDS [Concomitant]
     Route: 065
     Dates: start: 20110526
  22. AUZEI [Concomitant]
     Route: 065
     Dates: start: 20110101, end: 20110101
  23. VITAMEDIN [Concomitant]
     Route: 065
     Dates: start: 20110101, end: 20110101
  24. TYKERB [Concomitant]
     Indication: BREAST CANCER METASTATIC
     Dosage: 1250 MILLIGRAM
     Route: 048
     Dates: start: 20110404, end: 20110525
  25. DEXAMETHASONE SODIUM PHOSPHATE [Concomitant]
     Route: 065
     Dates: start: 20110101, end: 20110101

REACTIONS (7)
  - SUBDURAL HAEMATOMA [None]
  - DEPRESSED LEVEL OF CONSCIOUSNESS [None]
  - GRANULOCYTE COUNT DECREASED [None]
  - THROMBOCYTOPENIA [None]
  - BLOOD BILIRUBIN INCREASED [None]
  - FEBRILE NEUTROPENIA [None]
  - INTERNATIONAL NORMALISED RATIO INCREASED [None]
